FAERS Safety Report 4931877-9 (Version None)
Quarter: 2006Q1

REPORT INFORMATION
  Report Type: 
  Country: None (occurrence: None)
  Receive Date: 20060303
  Receipt Date: 20050927
  Transmission Date: 20060701
  Serious: Yes (Hospitalization)
  Sender: FDA-Public Use
  Company Number: US-MERCK-0509USA04612

PATIENT
  Age: 67 Year
  Sex: Female
  Weight: 118 kg

DRUGS (17)
  1. VIOXX [Suspect]
     Indication: OSTEOARTHRITIS
     Route: 048
     Dates: start: 20011001, end: 20040101
  2. LEVOXYL [Concomitant]
     Route: 065
  3. PREVACID [Concomitant]
     Route: 065
  4. FOSAMAX [Concomitant]
     Route: 065
  5. LANTUS [Concomitant]
     Route: 065
  6. HUMALOG [Concomitant]
     Route: 065
  7. NOVOLOG [Concomitant]
     Route: 065
  8. CHLORTHALIDONE [Concomitant]
     Route: 065
  9. PLAVIX [Concomitant]
     Route: 065
  10. GLUCOPHAGE [Concomitant]
     Route: 065
  11. ACCUPRIL [Concomitant]
     Route: 065
  12. ATENOLOL [Concomitant]
     Route: 065
  13. OS-CAL [Concomitant]
     Route: 065
  14. OS-CAL [Concomitant]
     Route: 065
  15. OSTEO-BI-FLEX [Concomitant]
     Route: 065
  16. CENTRUM SILVER [Concomitant]
     Route: 065
  17. ALEVE [Concomitant]
     Route: 065

REACTIONS (27)
  - ABDOMINAL PAIN LOWER [None]
  - ANAEMIA [None]
  - ANXIETY [None]
  - ARTERIOSCLEROSIS CORONARY ARTERY [None]
  - ARTHRALGIA [None]
  - ARTHROPATHY [None]
  - BACK PAIN [None]
  - CLOSTRIDIUM COLITIS [None]
  - CORONARY ARTERY DISEASE [None]
  - DIARRHOEA [None]
  - DIZZINESS [None]
  - EYE DISORDER [None]
  - FATIGUE [None]
  - HAEMORRHOIDS [None]
  - HEADACHE [None]
  - MELANOCYTIC NAEVUS [None]
  - MICROALBUMINURIA [None]
  - MUSCLE SPASMS [None]
  - NAUSEA [None]
  - NEUROPATHY PERIPHERAL [None]
  - OEDEMA PERIPHERAL [None]
  - OSTEOPOROSIS [None]
  - RENAL CYST [None]
  - URINARY TRACT INFECTION [None]
  - UTERINE DISORDER [None]
  - VAGINAL HAEMORRHAGE [None]
  - VASCULAR PSEUDOANEURYSM [None]
